FAERS Safety Report 8955178 (Version 2)
Quarter: 2012Q4

REPORT INFORMATION
  Report Type: 
  Country: US (occurrence: US)
  Receive Date: 20121210
  Receipt Date: 20121231
  Transmission Date: 20130627
  Serious: Yes (Death, Hospitalization, Other)
  Sender: FDA-Public Use
  Company Number: US-BIOGENIDEC-2012BI057396

PATIENT
  Age: 70 Year
  Sex: Female

DRUGS (2)
  1. AVONEX [Suspect]
     Indication: MULTIPLE SCLEROSIS
     Route: 030
     Dates: start: 20110509
  2. COUMADIN [Concomitant]
     Indication: CARDIAC VALVE DISEASE
     Route: 048
     Dates: start: 1999

REACTIONS (10)
  - Subdural haematoma [Fatal]
  - Vascular pseudoaneurysm [Not Recovered/Not Resolved]
  - Intracranial aneurysm [Not Recovered/Not Resolved]
  - Fall [Unknown]
  - Hypotension [Unknown]
  - Flank pain [Unknown]
  - Road traffic accident [Recovered/Resolved]
  - Post procedural complication [Not Recovered/Not Resolved]
  - Toothache [Unknown]
  - Impaired healing [Not Recovered/Not Resolved]
